FAERS Safety Report 7818853-3 (Version None)
Quarter: 2011Q4

REPORT INFORMATION
  Report Type: 
  Country: None (occurrence: None)
  Receive Date: 20111018
  Receipt Date: 20111004
  Transmission Date: 20120403
  Serious: Yes (Hospitalization)
  Sender: FDA-Public Use
  Company Number: DE-AMGEN-DEUSP2011039474

PATIENT
  Age: 38 Year
  Sex: Female
  Weight: 80 kg

DRUGS (5)
  1. METHOTREXATE [Concomitant]
     Indication: POLYARTHRITIS
     Dosage: UNK
     Dates: start: 20110101
  2. ENBREL [Suspect]
     Dosage: 50 MG, WEEKLY
     Dates: start: 20101001
  3. METHOTREXATE [Concomitant]
     Dosage: 15 UNK, WEEKLY
     Dates: start: 20110201
  4. ENBREL [Suspect]
     Indication: PRODUCT USED FOR UNKNOWN INDICATION
     Dosage: 50 MG, WEEKLY
  5. LEVOTHYROXINE SODIUM [Concomitant]
     Indication: HYPOTHYROIDISM
     Dosage: 100
     Dates: start: 20090201

REACTIONS (2)
  - OVARIAN CYST [None]
  - OVARIAN NEOPLASM [None]
